FAERS Safety Report 24766396 (Version 1)
Quarter: 2024Q4

REPORT INFORMATION
  Report Type: Spontaneous
  Country: US (occurrence: None)
  Receive Date: 20241223
  Receipt Date: 20241223
  Transmission Date: 20250115
  Serious: Yes (Disabling)
  Sender: Public
  Company Number: None

PATIENT
  Age: 53 Year
  Sex: Female
  Weight: 71.1 kg

DRUGS (9)
  1. REPATHA [Suspect]
     Active Substance: EVOLOCUMAB
     Indication: Blood cholesterol increased
     Dosage: OTHER FREQUENCY : EVERY TWO WEEKS;?
     Route: 030
     Dates: start: 20241023, end: 20241218
  2. VENLAFAXINE [Concomitant]
     Active Substance: VENLAFAXINE HYDROCHLORIDE
  3. THYROID [Concomitant]
     Active Substance: LEVOTHYROXINE\LIOTHYRONINE
  4. GABAPENTIN [Concomitant]
     Active Substance: GABAPENTIN
  5. PROGESTERONE [Concomitant]
     Active Substance: PROGESTERONE
  6. ESTROGENS [Concomitant]
     Active Substance: ESTROGENS
  7. VITAMIN D3 [Concomitant]
     Active Substance: CHOLECALCIFEROL
  8. VITAMIN C [Concomitant]
     Active Substance: ASCORBIC ACID
  9. multi-vitamin for women over 50 [Concomitant]

REACTIONS (5)
  - Decreased activity [None]
  - Back pain [None]
  - Neck pain [None]
  - Pain [None]
  - Therapy cessation [None]

NARRATIVE: CASE EVENT DATE: 20241106
